FAERS Safety Report 4557108-X (Version None)
Quarter: 2005Q1

REPORT INFORMATION
  Report Type: 
  Country: None (occurrence: None)
  Receive Date: 20050120
  Receipt Date: 20050113
  Transmission Date: 20050727
  Serious: Yes (Other)
  Sender: FDA-Public Use
  Company Number: PHBS2005IT00904

PATIENT
  Age: 45 Year
  Sex: Female

DRUGS (1)
  1. IMATINIB [Suspect]
     Indication: CHRONIC MYELOID LEUKAEMIA
     Dosage: 600 MG/DAY
     Route: 065

REACTIONS (2)
  - DERMATOSIS [None]
  - SWEAT GLAND TUMOUR [None]
